FAERS Safety Report 4753257-1 (Version None)
Quarter: 2005Q3

REPORT INFORMATION
  Report Type: 
  Country: None (occurrence: None)
  Receive Date: 20050826
  Receipt Date: 20050809
  Transmission Date: 20060218
  Serious: Yes (Other)
  Sender: FDA-Public Use
  Company Number: PHNR2005AU01216

PATIENT
  Sex: Female

DRUGS (7)
  1. ZOMETA [Suspect]
  2. URSO FALK [Concomitant]
  3. OXYCONTIN [Concomitant]
  4. METOPROLOL [Concomitant]
  5. FUROSEMIDE [Concomitant]
  6. ENDEP [Concomitant]
  7. EFEXOR /USA/ [Concomitant]

REACTIONS (3)
  - PAIN IN EXTREMITY [None]
  - TENDON DISORDER [None]
  - TRIGGER FINGER [None]
